FAERS Safety Report 12474660 (Version 1)
Quarter: 2016Q2

REPORT INFORMATION
  Report Type: Spontaneous
  Country: IL (occurrence: IL)
  Receive Date: 20160617
  Receipt Date: 20160617
  Transmission Date: 20160815
  Serious: Yes (Other)
  Sender: FDA-Public Use
  Company Number: IL-009507513-1606ISR006687

PATIENT
  Age: 53 Year
  Sex: Female

DRUGS (1)
  1. KEYTRUDA [Suspect]
     Active Substance: PEMBROLIZUMAB
     Dosage: TWO CYCLE
     Route: 042

REACTIONS (12)
  - Hyponatraemia [Unknown]
  - Blood thyroid stimulating hormone increased [Unknown]
  - Lymphocyte count decreased [Unknown]
  - Red blood cell count increased [Unknown]
  - Neutrophil percentage increased [Unknown]
  - Platelet count decreased [Unknown]
  - Hypokalaemia [Unknown]
  - C-reactive protein increased [Unknown]
  - Red cell distribution width increased [Unknown]
  - Blood urea increased [Unknown]
  - Haemoglobin decreased [Unknown]
  - Haematocrit decreased [Unknown]
